FAERS Safety Report 4841524-2 (Version None)
Quarter: 2005Q4

REPORT INFORMATION
  Report Type: 
  Country: None (occurrence: None)
  Receive Date: 20051130
  Receipt Date: 20050816
  Transmission Date: 20060501
  Serious: No
  Sender: FDA-Public Use
  Company Number: US-GLAXOSMITHKLINE-A0570445A

PATIENT
  Age: 79 Year
  Sex: Male
  Weight: 81.4 kg

DRUGS (4)
  1. WELLBUTRIN XL [Suspect]
     Indication: DEPRESSION
     Route: 048
     Dates: start: 20050311, end: 20050409
  2. HYTRIN [Concomitant]
     Dosage: 10MG THREE TIMES PER DAY
  3. PLETAL [Concomitant]
     Dosage: 50MG TWICE PER DAY
  4. NEXIUM [Concomitant]
     Dosage: 40MG PER DAY

REACTIONS (2)
  - MICTURITION DISORDER [None]
  - URINARY TRACT INFECTION [None]
